FAERS Safety Report 13522227 (Version 2)
Quarter: 2017Q2

REPORT INFORMATION
  Report Type: Spontaneous
  Country: US (occurrence: US)
  Receive Date: 20170508
  Receipt Date: 20170620
  Transmission Date: 20170830
  Serious: Yes (Hospitalization)
  Sender: FDA-Public Use
  Company Number: US-GLAXOSMITHKLINE-US2017064791

PATIENT
  Age: 63 Year
  Sex: Male

DRUGS (2)
  1. ADVAIR DISKUS [Suspect]
     Active Substance: FLUTICASONE PROPIONATE\SALMETEROL XINAFOATE
     Indication: DYSPNOEA
     Dosage: 1 PUFF(S), BID
     Route: 055
     Dates: start: 201611
  2. ADVAIR DISKUS [Suspect]
     Active Substance: FLUTICASONE PROPIONATE\SALMETEROL XINAFOATE
     Dosage: 1 PUFF(S), BID
     Route: 055
     Dates: start: 201704, end: 201704

REACTIONS (9)
  - Tongue disorder [Unknown]
  - Incorrect product storage [Recovered/Resolved]
  - Tinnitus [Unknown]
  - Pharyngeal inflammation [Unknown]
  - Tongue discolouration [Unknown]
  - Ear disorder [Unknown]
  - Blood potassium decreased [Unknown]
  - Influenza like illness [Recovered/Resolved]
  - Ear tube insertion [Unknown]

NARRATIVE: CASE EVENT DATE: 201704
